FAERS Safety Report 10221873 (Version 1)
Quarter: 2014Q2

REPORT INFORMATION
  Report Type: Spontaneous
  Country: BR (occurrence: BR)
  Receive Date: 20140606
  Receipt Date: 20140606
  Transmission Date: 20141212
  Serious: No
  Sender: FDA-Public Use
  Company Number: BR-BIOMARINAP-BR-2013-101611

PATIENT
  Age: 9 Year
  Sex: Male
  Weight: 20.8 kg

DRUGS (1)
  1. NAGLAZYME [Suspect]
     Indication: MUCOPOLYSACCHARIDOSIS VI
     Dosage: 25 MG, QW
     Route: 041
     Dates: start: 20110221

REACTIONS (3)
  - Bronchitis [Unknown]
  - Pyrexia [Unknown]
  - Wheezing [Unknown]
